FAERS Safety Report 8812475 (Version 1)
Quarter: 2012Q4

REPORT INFORMATION
  Report Type: 
  Country: TH (occurrence: TH)
  Receive Date: 20120927
  Receipt Date: 20120927
  Transmission Date: 20130627
  Serious: Yes (Death, Other)
  Sender: FDA-Public Use
  Company Number: PHHO2007TH05918

PATIENT
  Age: 46 Year
  Sex: Female

DRUGS (2)
  1. GLIVEC [Suspect]
     Indication: CHRONIC MYELOID LEUKAEMIA
     Dosage: 400 mg, UNK
     Route: 048
     Dates: start: 20050718
  2. GLIVEC [Suspect]
     Dosage: 300 mg per day
     Route: 048

REACTIONS (3)
  - Cerebral haemorrhage [Fatal]
  - Refractoriness to platelet transfusion [Unknown]
  - Thrombocytopenia [Unknown]
